FAERS Safety Report 14404602 (Version 1)
Quarter: 2018Q1

REPORT INFORMATION
  Report Type: Spontaneous
  Country: US (occurrence: US)
  Receive Date: 20180117
  Receipt Date: 20180117
  Transmission Date: 20180509
  Serious: Yes (Other)
  Sender: FDA-Public Use
  Company Number: US-JNJFOC-20180107399

PATIENT
  Sex: Female

DRUGS (2)
  1. TYLENOL [Suspect]
     Active Substance: ACETAMINOPHEN
     Route: 048
  2. TYLENOL [Suspect]
     Active Substance: ACETAMINOPHEN
     Indication: HANGOVER
     Dosage: 2 DOSES DAILY AT NIGHT (BEFORE GOING TO BED)
     Route: 048

REACTIONS (2)
  - Product use in unapproved indication [Unknown]
  - Liver injury [Not Recovered/Not Resolved]
